FAERS Safety Report 9337625 (Version 2)
Quarter: 2013Q3

REPORT INFORMATION
  Report Type: Report from Study
  Country: US (occurrence: US)
  Receive Date: 20130607
  Receipt Date: 20130723
  Transmission Date: 20140515
  Serious: Yes (Hospitalization)
  Sender: FDA-Public Use
  Company Number: US-ABBOTT-13P-163-1091673-00

PATIENT
  Sex: Female
  Weight: 64.92 kg

DRUGS (11)
  1. HUMIRA [Suspect]
     Indication: CROHN^S DISEASE
     Dates: start: 2008, end: 2010
  2. HUMIRA [Suspect]
     Indication: COLITIS ULCERATIVE
     Dates: start: 2010, end: 2012
  3. HUMIRA [Suspect]
     Indication: CROHN^S DISEASE
     Dates: start: 2012, end: 201212
  4. HUMIRA [Suspect]
     Indication: COLITIS ULCERATIVE
  5. PROTONIX [Concomitant]
     Indication: GASTROOESOPHAGEAL REFLUX DISEASE
  6. ZOLOFT [Concomitant]
     Indication: DEPRESSION
  7. LOMOTIL [Concomitant]
     Indication: PRODUCT USED FOR UNKNOWN INDICATION
  8. LEVASIN [Concomitant]
     Indication: ABDOMINAL PAIN UPPER
  9. LEVASIN [Concomitant]
     Indication: ABDOMINAL PAIN UPPER
  10. PROCHLORPERAZINE [Concomitant]
     Indication: NAUSEA
  11. SULFASALAZINE [Concomitant]
     Indication: COLITIS ULCERATIVE

REACTIONS (12)
  - Abdominal distension [Recovered/Resolved]
  - Abdominal pain [Recovering/Resolving]
  - Dehydration [Recovered/Resolved]
  - Abdominal pain [Recovered/Resolved]
  - Dehydration [Recovered/Resolved]
  - Rectal haemorrhage [Recovered/Resolved]
  - Nausea [Recovered/Resolved]
  - Crohn^s disease [Recovered/Resolved]
  - Fatigue [Recovered/Resolved]
  - Cystitis [Recovered/Resolved]
  - Weight decreased [Recovered/Resolved]
  - Intestinal dilatation [Recovered/Resolved]
